FAERS Safety Report 25048381 (Version 7)
Quarter: 2025Q4

REPORT INFORMATION
  Report Type: Report from Study
  Country: US (occurrence: US)
  Receive Date: 20250307
  Receipt Date: 20251221
  Transmission Date: 20260118
  Serious: Yes (Other)
  Sender: CSL BEHRING
  Company Number: US-BEH-2025197812

PATIENT
  Age: 46 Year
  Sex: Female

DRUGS (11)
  1. HAEMATE P [Suspect]
     Active Substance: ANTIHEMOPHILIC FACTOR HUMAN
     Indication: Von Willebrand^s disease
     Dosage: 1200 IU, BIW(STRENGTH: 1200U)
     Route: 042
     Dates: start: 202410
  2. HAEMATE P [Suspect]
     Active Substance: ANTIHEMOPHILIC FACTOR HUMAN
     Indication: Prophylaxis
     Dosage: 600 IU, BIW(STRENGTH: 600U)
     Route: 042
     Dates: start: 202410
  3. HAEMATE P [Suspect]
     Active Substance: ANTIHEMOPHILIC FACTOR HUMAN
     Dosage: 1800 RCOF UNITS, BIW(STRENGTH: 1200U)
     Route: 042
     Dates: start: 202410
  4. HAEMATE P [Suspect]
     Active Substance: ANTIHEMOPHILIC FACTOR HUMAN
     Dosage: 1800 RCOF UNITS, BIW(STRENGTH: 1200U)
     Route: 042
     Dates: start: 202410
  5. HAEMATE P [Suspect]
     Active Substance: ANTIHEMOPHILIC FACTOR HUMAN
     Dosage: UNK UNK, QOD
     Route: 065
  6. HAEMATE P [Suspect]
     Active Substance: ANTIHEMOPHILIC FACTOR HUMAN
     Dosage: UNK UNK, BIW, 250-600 MG 2TW
     Route: 042
     Dates: start: 20251014, end: 20251014
  7. HAEMATE P [Suspect]
     Active Substance: ANTIHEMOPHILIC FACTOR HUMAN
     Dosage: UNK UNK, BIW
     Route: 042
     Dates: start: 20251112
  8. HAEMATE P [Suspect]
     Active Substance: ANTIHEMOPHILIC FACTOR HUMAN
     Dosage: UNK
     Route: 065
  9. SODIUM CHLORIDE [Concomitant]
     Active Substance: SODIUM CHLORIDE
     Dosage: 10 ML
  10. HUMATE-P [Concomitant]
     Active Substance: HUMAN COAGULATION FACTOR VIII/VON WILLEBRAND FACTOR COMPLEX
     Dosage: UNK, PRN
     Route: 042
     Dates: start: 20251014, end: 20251014
  11. ZEMAIRA [Concomitant]
     Active Substance: .ALPHA.1-PROTEINASE INHIBITOR HUMAN
     Dosage: UNK
     Route: 042
     Dates: start: 20251112, end: 20251112

REACTIONS (17)
  - Haemarthrosis [Not Recovered/Not Resolved]
  - Haemarthrosis [Unknown]
  - Haemorrhage [Recovered/Resolved]
  - Mucosal haemorrhage [Unknown]
  - Drug ineffective [Unknown]
  - Traumatic haemorrhage [Unknown]
  - Fall [Unknown]
  - Limb injury [Unknown]
  - Insurance issue [Not Recovered/Not Resolved]
  - Contusion [Unknown]
  - Dark circles under eyes [Unknown]
  - Blood urine present [Unknown]
  - Vaginal haemorrhage [Unknown]
  - Anxiety [Not Recovered/Not Resolved]
  - Discharge [Recovered/Resolved]
  - Inappropriate schedule of product administration [Recovered/Resolved]
  - Incorrect drug administration rate [Recovered/Resolved]

NARRATIVE: CASE EVENT DATE: 20250218
